FAERS Safety Report 7813684-2 (Version None)
Quarter: 2011Q4

REPORT INFORMATION
  Report Type: 
  Country: None (occurrence: None)
  Receive Date: 20111014
  Receipt Date: 20111001
  Transmission Date: 20120403
  Serious: Yes (Hospitalization, Other)
  Sender: FDA-Public Use
  Company Number: US-ELI_LILLY_AND_COMPANY-US201105005624

PATIENT
  Sex: Female
  Weight: 44 kg

DRUGS (2)
  1. FORTEO [Suspect]
     Indication: OSTEOPOROSIS
     Dosage: 20 UG, QD
     Dates: start: 20110418
  2. FORTEO [Suspect]
     Dosage: 20 UG, QD

REACTIONS (12)
  - BLOOD PRESSURE INCREASED [None]
  - DRUG DOSE OMISSION [None]
  - LUNG DISORDER [None]
  - COLONIC OBSTRUCTION [None]
  - HYPOACUSIS [None]
  - WEIGHT GAIN POOR [None]
  - CEREBROVASCULAR ACCIDENT [None]
  - FLUID RETENTION [None]
  - APHASIA [None]
  - BLOOD PRESSURE FLUCTUATION [None]
  - HOSPITALISATION [None]
  - CEREBRAL THROMBOSIS [None]
